FAERS Safety Report 23996850 (Version 3)
Quarter: 2025Q3

REPORT INFORMATION
  Report Type: Report from Study
  Country: KR (occurrence: KR)
  Receive Date: 20240620
  Receipt Date: 20250918
  Transmission Date: 20251021
  Serious: Yes (Hospitalization)
  Sender: CELLTRION
  Company Number: KR-CELLTRION INC.-2024KR011748

PATIENT

DRUGS (45)
  1. BEVACIZUMAB-ADCD [Suspect]
     Active Substance: BEVACIZUMAB-ADCD
     Indication: Colorectal cancer metastatic
     Dosage: 354 MG (5 MG/KG), Q2WEEKS (WEIGHT AT THE TIME OF ADMINISTRATION: 70.8 KG)
     Dates: start: 20240425
  2. BEVACIZUMAB-ADCD [Suspect]
     Active Substance: BEVACIZUMAB-ADCD
     Dosage: 353.5 MG (5 MG/KG), Q2WEEKS (WEIGHT AT THE TIME OF ADMINISTRATION: 70.7 KG)
     Route: 042
     Dates: start: 20240604
  3. BEVACIZUMAB-ADCD [Suspect]
     Active Substance: BEVACIZUMAB-ADCD
     Dosage: 325 MG (5 MG/KG), Q2WEEKS (WEIGHT AT THE TIME OF ADMINISTRATION: 65 KG)
     Dates: start: 20240516
  4. BEVACIZUMAB-ADCD [Suspect]
     Active Substance: BEVACIZUMAB-ADCD
     Dosage: 353.5 MG (5 MG/KG), Q2WEEKS (WEIGHT AT THE TIME OF ADMINISTRATION: 70.7 KG)
     Dates: start: 20240618
  5. BEVACIZUMAB-ADCD [Suspect]
     Active Substance: BEVACIZUMAB-ADCD
     Dosage: 353.5 MG (5 MG/KG), Q2WEEKS (WEIGHT AT THE TIME OF ADMINISTRATION: 70.7 KG)
     Dates: start: 20240702
  6. BEVACIZUMAB-ADCD [Suspect]
     Active Substance: BEVACIZUMAB-ADCD
     Dosage: 347.5 MG (5 MG/KG), Q2WEEKS (WEIGHT AT THE TIME OF ADMINISTRATION: 69.5 KG)
     Dates: start: 20240718
  7. BEVACIZUMAB-ADCD [Suspect]
     Active Substance: BEVACIZUMAB-ADCD
     Dosage: 347.5 MG (5 MG/KG), Q2WEEKS (WEIGHT AT THE TIME OF ADMINISTRATION: 69.5 KG)
     Dates: start: 20240802
  8. BEVACIZUMAB-ADCD [Suspect]
     Active Substance: BEVACIZUMAB-ADCD
     Dosage: 354 MG (5 MG/KG), Q2WEEKS (WEIGHT AT THE TIME OF ADMINISTRATION: 70.8 KG)
     Dates: start: 20240817
  9. BEVACIZUMAB-ADCD [Suspect]
     Active Substance: BEVACIZUMAB-ADCD
     Dosage: 362 MG (5 MG/KG), Q2WEEKS (WEIGHT AT THE TIME OF ADMINISTRATION: 72.4 KG)
     Dates: start: 20240904
  10. BEVACIZUMAB-ADCD [Suspect]
     Active Substance: BEVACIZUMAB-ADCD
     Dosage: 360 MG (5 MG/KG), Q2WEEKS (WEIGHT AT THE TIME OF ADMINISTRATION: 72 KG)
     Dates: start: 20240920
  11. BEVACIZUMAB-ADCD [Suspect]
     Active Substance: BEVACIZUMAB-ADCD
     Dosage: 375MG (5 MG/KG), Q2WEEKS (WEIGHT AT THE TIME OF ADMINISTRATION: 75 KG)
     Dates: start: 20241008
  12. BEVACIZUMAB-ADCD [Suspect]
     Active Substance: BEVACIZUMAB-ADCD
     Dosage: 379.5 MG (5 MG/KG), Q2WEEKS (WEIGHT AT THE TIME OF ADMINISTRATION: 75.9 KG)
     Dates: start: 20241023
  13. BEVACIZUMAB-ADCD [Suspect]
     Active Substance: BEVACIZUMAB-ADCD
     Dosage: 380 MG (5 MG/KG), Q2WEEKS (WEIGHT AT THE TIME OF ADMINISTRATION: 76 KG)
     Dates: start: 20241108
  14. BEVACIZUMAB-ADCD [Suspect]
     Active Substance: BEVACIZUMAB-ADCD
     Dosage: 380 MG (5 MG/KG), Q2WEEKS (WEIGHT AT THE TIME OF ADMINISTRATION: 76 KG)
     Dates: start: 20241130
  15. BEVACIZUMAB-ADCD [Suspect]
     Active Substance: BEVACIZUMAB-ADCD
     Dosage: 380 MG (5 MG/KG), Q2WEEKS (WEIGHT AT THE TIME OF ADMINISTRATION: 76 KG)
     Dates: start: 20241218
  16. BEVACIZUMAB-ADCD [Suspect]
     Active Substance: BEVACIZUMAB-ADCD
     Dosage: 380 MG (5 MG/KG), Q2WEEKS (WEIGHT AT THE TIME OF ADMINISTRATION: 76 KG)
     Dates: start: 20250109
  17. BEVACIZUMAB-ADCD [Suspect]
     Active Substance: BEVACIZUMAB-ADCD
     Dosage: 375 MG (5 MG/KG), Q2WEEKS (WEIGHT AT THE TIME OF ADMINISTRATION: 75 KG)
     Dates: start: 20250124
  18. BEVACIZUMAB-ADCD [Suspect]
     Active Substance: BEVACIZUMAB-ADCD
     Dosage: 344 MG (5 MG/KG), Q2WEEKS (WEIGHT AT THE TIME OF ADMINISTRATION: 68.8 KG)
     Dates: start: 20250212
  19. BEVACIZUMAB-ADCD [Suspect]
     Active Substance: BEVACIZUMAB-ADCD
     Dosage: 350 MG (5 MG/KG), Q2WEEKS (WEIGHT AT THE TIME OF ADMINISTRATION: 70 KG)
     Dates: start: 20250303
  20. LEUCOVORIN CALCIUM [Suspect]
     Active Substance: LEUCOVORIN CALCIUM
     Indication: Colorectal cancer metastatic
     Route: 042
     Dates: start: 20230525, end: 20250305
  21. LEUCOVORIN CALCIUM [Suspect]
     Active Substance: LEUCOVORIN CALCIUM
     Indication: Prophylaxis
     Dates: start: 20240425
  22. IRINOTECAN HYDROCHLORIDE [Suspect]
     Active Substance: IRINOTECAN HYDROCHLORIDE
     Indication: Colorectal cancer metastatic
     Dates: start: 20240425, end: 20250305
  23. FLUOROURACIL [Suspect]
     Active Substance: FLUOROURACIL
     Indication: Colorectal cancer metastatic
     Dates: start: 20230505
  24. FLUOROURACIL [Suspect]
     Active Substance: FLUOROURACIL
     Dates: start: 20240425
  25. DIABEX [Concomitant]
     Active Substance: METFORMIN HYDROCHLORIDE
     Indication: Diabetes mellitus
     Route: 048
     Dates: start: 20231108
  26. GLIMEPID [Concomitant]
     Indication: Diabetes mellitus
     Route: 048
     Dates: start: 20231108
  27. GLEZON [Concomitant]
     Indication: Diabetes mellitus
     Route: 048
     Dates: start: 20240115
  28. FERROUS SULFATE\PROTEASE [Concomitant]
     Active Substance: FERROUS SULFATE\PROTEASE
     Indication: Anaemia
     Route: 048
     Dates: start: 20230608
  29. HARNAL [Concomitant]
     Active Substance: TAMSULOSIN HYDROCHLORIDE
     Indication: Benign prostatic hyperplasia
     Route: 048
     Dates: start: 20230608
  30. PANTOPRAZOLE SODIUM [Concomitant]
     Active Substance: PANTOPRAZOLE SODIUM
     Indication: Neutropenic sepsis
     Route: 042
     Dates: start: 20240505, end: 20240506
  31. NESBELL [Concomitant]
     Indication: Anaemia
     Route: 058
     Dates: start: 20240506, end: 20240506
  32. LENOGRASTIM [Concomitant]
     Active Substance: LENOGRASTIM
     Indication: Neutropenic sepsis
     Route: 058
     Dates: start: 20240505, end: 20240508
  33. AMINO ACIDS\DEXTROSE\ELECTROLYTES NOS\SOYBEAN OIL [Concomitant]
     Active Substance: AMINO ACIDS\DEXTROSE\ELECTROLYTES NOS\SOYBEAN OIL
     Indication: Neutropenic sepsis
     Route: 042
     Dates: start: 20240505, end: 20240507
  34. NORPIN [NOREPINEPHRINE] [Concomitant]
     Indication: Neutropenic sepsis
     Route: 042
     Dates: start: 20240505, end: 20240509
  35. NORZYME [Concomitant]
     Indication: Prophylaxis
     Route: 048
     Dates: start: 20240506
  36. NORZYME [Concomitant]
     Indication: Dyspepsia
  37. FEXADIN [FENOVERINE] [Concomitant]
     Indication: Prophylaxis against diarrhoea
     Route: 048
     Dates: start: 20240514
  38. MAXIPIME [Concomitant]
     Active Substance: CEFEPIME HYDROCHLORIDE
     Indication: Neutropenic sepsis
     Route: 042
     Dates: start: 20240505, end: 20240513
  39. NEULAPEG [Concomitant]
     Indication: Neutropenia
     Route: 058
     Dates: start: 20240519
  40. QUETIAPINE FUMARATE [Concomitant]
     Active Substance: QUETIAPINE FUMARATE
     Indication: Prophylaxis
     Route: 048
     Dates: start: 20240506
  41. QUETIAPINE FUMARATE [Concomitant]
     Active Substance: QUETIAPINE FUMARATE
     Indication: Insomnia
  42. STAVIC [Concomitant]
     Indication: Prophylaxis against diarrhoea
     Route: 048
     Dates: start: 20240518, end: 20240606
  43. MAGNESIUM HYDROXIDE [Concomitant]
     Active Substance: MAGNESIUM HYDROXIDE
     Indication: Haemorrhoids
     Route: 048
     Dates: start: 20240506
  44. BIOFLOR [Concomitant]
     Indication: Haemorrhoids
     Route: 048
     Dates: start: 20240401
  45. MEGESTROL ACETATE DAEWON [Concomitant]
     Indication: Decreased appetite
     Route: 048
     Dates: start: 20230626

REACTIONS (1)
  - Rhabdomyolysis [Recovered/Resolved]

NARRATIVE: CASE EVENT DATE: 20240505
